FAERS Safety Report 7528306-8 (Version None)
Quarter: 2011Q2

REPORT INFORMATION
  Report Type: 
  Country: None (occurrence: None)
  Receive Date: 20110607
  Receipt Date: 20100421
  Transmission Date: 20111010
  Serious: No
  Sender: FDA-Public Use
  Company Number: US-ASTRAZENECA-2010SE17844

PATIENT
  Age: 649 Month
  Sex: Female

DRUGS (2)
  1. REQUIP [Interacting]
  2. PRILOSEC [Suspect]
     Indication: GASTRITIS
     Route: 048
     Dates: start: 20090801, end: 20100401

REACTIONS (3)
  - DRUG INTERACTION [None]
  - FATIGUE [None]
  - GASTROOESOPHAGEAL REFLUX DISEASE [None]
